FAERS Safety Report 8858443 (Version 4)
Quarter: 2013Q3

REPORT INFORMATION
  Report Type: Spontaneous
  Country: US (occurrence: US)
  Receive Date: 20121024
  Receipt Date: 20130716
  Transmission Date: 20140515
  Serious: Yes (Hospitalization, Disabling, Other)
  Sender: FDA-Public Use
  Company Number: US-009507513-1007USA01076

PATIENT
  Sex: Female
  Weight: 74.83 kg

DRUGS (7)
  1. FOSAMAX [Suspect]
     Indication: OSTEOPOROSIS
     Dosage: 70 MG, QW
     Route: 048
     Dates: start: 200212, end: 200710
  2. FOSAMAX [Suspect]
     Indication: OSTEOPENIA
  3. FOSAMAX [Suspect]
     Indication: PROPHYLAXIS
  4. FOSAMAX [Suspect]
     Dosage: 70 MG, QW
     Route: 048
     Dates: start: 20090213
  5. PAXIL [Concomitant]
  6. PROZAC [Concomitant]
  7. ALENDRONATE SODIUM [Suspect]
     Dosage: 70 MG, UNK
     Route: 048

REACTIONS (68)
  - Femur fracture [Unknown]
  - Open reduction of fracture [Not Recovered/Not Resolved]
  - Haemorrhagic anaemia [Unknown]
  - Renal failure acute [Unknown]
  - Bile duct stone [Unknown]
  - Cholecystectomy [Unknown]
  - Renal failure chronic [Not Recovered/Not Resolved]
  - Fall [Unknown]
  - Lower limb fracture [Unknown]
  - Lower limb fracture [Not Recovered/Not Resolved]
  - Pain [Not Recovered/Not Resolved]
  - Abasia [Not Recovered/Not Resolved]
  - Fall [Unknown]
  - Pain in extremity [Unknown]
  - Hypersensitivity [Recovered/Resolved]
  - Depression [Unknown]
  - Anxiety [Unknown]
  - Body height decreased [Unknown]
  - Dyspnoea [Unknown]
  - Insomnia [Unknown]
  - Stress [Unknown]
  - Depression [Unknown]
  - Haemorrhoids [Unknown]
  - Haemorrhoids [Unknown]
  - Anaemia [Unknown]
  - Large intestine polyp [Unknown]
  - Irritable bowel syndrome [Unknown]
  - Cataract operation [Unknown]
  - Diverticulum intestinal [Unknown]
  - Haematochezia [Unknown]
  - Temporomandibular joint syndrome [Unknown]
  - Dyspnoea exertional [Unknown]
  - Hyperlipidaemia [Unknown]
  - Incontinence [Unknown]
  - Cough [Unknown]
  - Diastolic dysfunction [Unknown]
  - Balance disorder [Unknown]
  - Tremor [Unknown]
  - Mitral valve prolapse [Unknown]
  - Gait disturbance [Unknown]
  - Hypoaesthesia [Unknown]
  - Memory impairment [Unknown]
  - Osteoarthritis [Unknown]
  - Radiculopathy [Unknown]
  - Urinary tract infection [Unknown]
  - Pulmonary mass [Unknown]
  - Vitamin B12 deficiency [Unknown]
  - Rhinitis allergic [Unknown]
  - Spinal column stenosis [Unknown]
  - Transient ischaemic attack [Unknown]
  - Mitral valve incompetence [Unknown]
  - Hypertension [Unknown]
  - Tricuspid valve incompetence [Unknown]
  - Muscular weakness [Unknown]
  - Asthenia [Unknown]
  - Asthenia [Unknown]
  - Neck pain [Not Recovered/Not Resolved]
  - Pain in extremity [Recovered/Resolved]
  - Pain in jaw [Unknown]
  - Constipation [Unknown]
  - Headache [Unknown]
  - Pain in extremity [Unknown]
  - Oedema peripheral [Unknown]
  - Gastrooesophageal reflux disease [Unknown]
  - Back pain [Not Recovered/Not Resolved]
  - Abdominal pain upper [Unknown]
  - Drug ineffective [Unknown]
  - Drug ineffective [Unknown]
